FAERS Safety Report 4497255-4 (Version None)
Quarter: 2004Q3

REPORT INFORMATION
  Report Type: 
  Country: None (occurrence: None)
  Receive Date: 20040927
  Receipt Date: 20040721
  Transmission Date: 20050211
  Serious: No
  Sender: FDA-Public Use
  Company Number: USA040773271

PATIENT
  Sex: Female

DRUGS (3)
  1. STRATTERA [Suspect]
     Dosage: 80 MG/1 DAY
     Dates: start: 20040714
  2. ANTIHISTAMINE [Concomitant]
  3. ATIVAN [Concomitant]

REACTIONS (4)
  - EYE IRRITATION [None]
  - FATIGUE [None]
  - KERATOCONJUNCTIVITIS SICCA [None]
  - POLLAKIURIA [None]
